FAERS Safety Report 24300722 (Version 1)
Quarter: 2024Q3

REPORT INFORMATION
  Report Type: Spontaneous
  Country: DE (occurrence: DE)
  Receive Date: 20240910
  Receipt Date: 20240910
  Transmission Date: 20241016
  Serious: Yes (Other)
  Sender: ABBVIE
  Company Number: None

PATIENT

DRUGS (2)
  1. ESCITALOPRAM [Suspect]
     Active Substance: ESCITALOPRAM OXALATE
     Indication: Depression
     Dosage: 20MG
     Route: 048
     Dates: start: 20230420
  2. ESCITALOPRAM [Suspect]
     Active Substance: ESCITALOPRAM OXALATE
     Indication: Depression
     Route: 048

REACTIONS (8)
  - Electrocardiogram QT prolonged [Recovered/Resolved]
  - Tendon discomfort [Recovering/Resolving]
  - Myalgia [Recovering/Resolving]
  - Carpal tunnel syndrome [Recovering/Resolving]
  - Mobility decreased [Recovering/Resolving]
  - Pain [Recovering/Resolving]
  - Pain in extremity [Recovering/Resolving]
  - Tendon pain [Recovering/Resolving]

NARRATIVE: CASE EVENT DATE: 20230420
